FAERS Safety Report 9486785 (Version 3)
Quarter: 2014Q2

REPORT INFORMATION
  Report Type: Spontaneous
  Country: US (occurrence: US)
  Receive Date: 20130829
  Receipt Date: 20140522
  Transmission Date: 20141212
  Serious: Yes (Hospitalization)
  Sender: FDA-Public Use
  Company Number: US-B.I. PHARMACEUTICALS,INC./RIDGEFIELD-2013-BI-26381BP

PATIENT
  Age: 74 Year
  Sex: Female
  Weight: 99.79 kg

DRUGS (7)
  1. PRADAXA [Suspect]
     Indication: ATRIAL FIBRILLATION
     Dosage: 300 MG
     Route: 048
     Dates: start: 20110124, end: 20110827
  2. LISINOPRIL [Concomitant]
     Dosage: 20 MG
     Route: 048
  3. METOLAZONE [Concomitant]
     Dosage: 50 MG
     Route: 048
  4. ASPIRIN [Concomitant]
     Dosage: 81 MG
     Route: 048
  5. TRICOR [Concomitant]
     Dosage: 145 MG
     Route: 048
  6. TYLENOL [Concomitant]
     Route: 065
  7. METOPROLOL [Concomitant]
     Dosage: 50 MG
     Route: 048

REACTIONS (2)
  - Haemorrhagic stroke [Unknown]
  - Cerebral haemorrhage [Unknown]
